FAERS Safety Report 13654641 (Version 1)
Quarter: 2017Q2

REPORT INFORMATION
  Report Type: Spontaneous
  Country: US (occurrence: US)
  Receive Date: 20170614
  Receipt Date: 20170614
  Transmission Date: 20170830
  Serious: Yes (Other)
  Sender: FDA-Public Use
  Company Number: None

PATIENT
  Age: 60 Year
  Sex: Female

DRUGS (1)
  1. DESOXIMETASONE. [Suspect]
     Active Substance: DESOXIMETASONE
     Indication: LICHEN SCLEROSUS
     Dosage: TWICE A DAY TOPICAL
     Route: 061
     Dates: start: 20170306, end: 20170427

REACTIONS (1)
  - Vulval disorder [None]

NARRATIVE: CASE EVENT DATE: 20170427
